FAERS Safety Report 8347854-4 (Version None)
Quarter: 2012Q2

REPORT INFORMATION
  Report Type: 
  Country: None (occurrence: None)
  Receive Date: 20120509
  Receipt Date: 20120507
  Transmission Date: 20120825
  Serious: Yes (Other)
  Sender: FDA-Public Use
  Company Number: TR-BAYER-2012-001568

PATIENT
  Sex: Male

DRUGS (1)
  1. AVELOX [Suspect]
     Indication: SINUSITIS
     Dosage: UNK

REACTIONS (5)
  - BURNING SENSATION [None]
  - PARAESTHESIA [None]
  - TENDONITIS [None]
  - BACK PAIN [None]
  - CENTRAL NERVOUS SYSTEM LESION [None]
